FAERS Safety Report 22535975 (Version 1)
Quarter: 2023Q2

REPORT INFORMATION
  Report Type: Spontaneous
  Country: PT (occurrence: PT)
  Receive Date: 20230608
  Receipt Date: 20230608
  Transmission Date: 20230722
  Serious: Yes (Other)
  Sender: FDA-Public Use
  Company Number: PT-FreseniusKabi-FK202307849

PATIENT
  Age: 36 Year
  Sex: Female

DRUGS (1)
  1. PIPERACILLIN SODIUM\TAZOBACTAM SODIUM [Suspect]
     Active Substance: PIPERACILLIN SODIUM\TAZOBACTAM SODIUM
     Indication: Antibiotic therapy
     Dosage: THERAPY FOR 4 TO 6 WEEKS.

REACTIONS (4)
  - Toxicity to various agents [Recovering/Resolving]
  - Leukopenia [Recovering/Resolving]
  - Hepatitis toxic [Recovering/Resolving]
  - Neutropenia [Recovering/Resolving]
